FAERS Safety Report 6077189-4 (Version None)
Quarter: 2009Q1

REPORT INFORMATION
  Report Type: 
  Country: None (occurrence: None)
  Receive Date: 20090213
  Receipt Date: 20090203
  Transmission Date: 20090719
  Serious: Yes (Other)
  Sender: FDA-Public Use
  Company Number: US-PFIZER INC-2007051431

PATIENT
  Sex: Male
  Weight: 72.7 kg

DRUGS (4)
  1. CHANTIX [Suspect]
     Indication: EX-TOBACCO USER
     Dosage: 1 MG, 2X/DAY
     Dates: start: 20070607, end: 20070801
  2. CHANTIX [Suspect]
     Indication: TOBACCO ABUSE
  3. CARDIOVASCULAR SYSTEM DRUGS [Concomitant]
  4. ACETYLSALICYLIC ACID [Concomitant]
     Dosage: UNK

REACTIONS (2)
  - PERIPHERAL VASCULAR DISORDER [None]
  - RAYNAUD'S PHENOMENON [None]
